FAERS Safety Report 23508490 (Version 1)
Quarter: 2024Q1

REPORT INFORMATION
  Report Type: Spontaneous
  Country: US (occurrence: US)
  Receive Date: 20240209
  Receipt Date: 20240209
  Transmission Date: 20240409
  Serious: Yes (Other)
  Sender: FDA-Public Use
  Company Number: US-FreseniusKabi-FK202402238

PATIENT
  Age: 63 Year
  Sex: Female

DRUGS (15)
  1. FLUDARABINE [Suspect]
     Active Substance: FLUDARABINE PHOSPHATE
     Indication: Lymphodepletion
  2. CYCLOPHOSPHAMIDE [Suspect]
     Active Substance: CYCLOPHOSPHAMIDE
     Indication: Chronic lymphocytic leukaemia
     Dosage: LYMPHODEPLETING CHEMOTHERAPY
  3. CYCLOPHOSPHAMIDE [Suspect]
     Active Substance: CYCLOPHOSPHAMIDE
     Indication: Richter^s syndrome
  4. GENETICALLY-MODIFIED AUTOLOGOUS T CELLS NOS [Suspect]
     Active Substance: GENETICALLY-MODIFIED AUTOLOGOUS T CELLS NOS
     Indication: Chronic lymphocytic leukaemia
     Dosage: LYMPHODEPLETING CHEMOTHERAPY?CAR-T CELL INFUSION WITH TIS-CEL 3.7 X 10^8 CELLS ANTI CD19 CAR-T CELLS
     Dates: start: 20210607
  5. GENETICALLY-MODIFIED AUTOLOGOUS T CELLS NOS [Suspect]
     Active Substance: GENETICALLY-MODIFIED AUTOLOGOUS T CELLS NOS
     Indication: Richter^s syndrome
  6. TISAGENLECLEUCEL [Suspect]
     Active Substance: TISAGENLECLEUCEL
     Indication: Chronic lymphocytic leukaemia
     Dosage: LYMPHODEPLETING CHEMOTHERAPY?CAR-T CELL INFUSION WITH TIS-CEL 3.7 X 10^8 CELLS ANTI CD19 CAR-T CELLS
     Dates: start: 20210607
  7. TISAGENLECLEUCEL [Suspect]
     Active Substance: TISAGENLECLEUCEL
     Indication: Richter^s syndrome
  8. IBRUTINIB [Concomitant]
     Active Substance: IBRUTINIB
     Indication: Chronic lymphocytic leukaemia
     Dosage: THREE YEARS LATER (IN 2020), SHE DEVELOPED WORSENING LYMPHADENOPATHY WHILE ON IBRUTINIB
  9. IBRUTINIB [Concomitant]
     Active Substance: IBRUTINIB
     Indication: Richter^s syndrome
  10. VENETOCLAX [Concomitant]
     Active Substance: VENETOCLAX
     Indication: Chronic lymphocytic leukaemia
  11. VENETOCLAX [Concomitant]
     Active Substance: VENETOCLAX
     Indication: Richter^s syndrome
  12. OBINUTUZUMAB [Concomitant]
     Active Substance: OBINUTUZUMAB
     Indication: Richter^s syndrome
     Dosage: 2 CYCLES OF OBINUTUZUMAB
  13. OBINUTUZUMAB [Concomitant]
     Active Substance: OBINUTUZUMAB
     Indication: Chronic lymphocytic leukaemia
  14. CYCLOPHOSPHAMIDE\DOXORUBICIN\PREDNISONE\RITUXIMAB\VINCRISTINE [Concomitant]
     Active Substance: CYCLOPHOSPHAMIDE\DOXORUBICIN\PREDNISONE\RITUXIMAB\VINCRISTINE
     Indication: Richter^s syndrome
     Dosage: RECEIVED 6 CYCLES OF RCHOP
  15. CYCLOPHOSPHAMIDE\DOXORUBICIN\PREDNISONE\RITUXIMAB\VINCRISTINE [Concomitant]
     Active Substance: CYCLOPHOSPHAMIDE\DOXORUBICIN\PREDNISONE\RITUXIMAB\VINCRISTINE
     Indication: Chronic lymphocytic leukaemia

REACTIONS (1)
  - Cytokine release syndrome [Unknown]
